FAERS Safety Report 18513744 (Version 1)
Quarter: 2020Q4

REPORT INFORMATION
  Report Type: Spontaneous
  Country: US (occurrence: US)
  Receive Date: 20201118
  Receipt Date: 20201118
  Transmission Date: 20210114
  Serious: No
  Sender: FDA-Public Use
  Company Number: US-JNJFOC-20201102255

PATIENT
  Age: 19 Year
  Sex: Female

DRUGS (2)
  1. STELARA [Suspect]
     Active Substance: USTEKINUMAB
     Indication: CROHN^S DISEASE
     Dosage: START DATE ALSO REPORTED AS JUL-2019
     Route: 058
     Dates: start: 201901, end: 20201020
  2. STELARA [Suspect]
     Active Substance: USTEKINUMAB

REACTIONS (2)
  - Coronavirus infection [Recovered/Resolved]
  - Oropharyngeal pain [Unknown]

NARRATIVE: CASE EVENT DATE: 2020
